FAERS Safety Report 25746491 (Version 1)
Quarter: 2025Q3

REPORT INFORMATION
  Report Type: Spontaneous
  Country: CA (occurrence: CA)
  Receive Date: 20250901
  Receipt Date: 20250901
  Transmission Date: 20251020
  Serious: Yes (Other)
  Sender: TEVA
  Company Number: CA-TEVA-VS-3366988

PATIENT
  Age: 63 Year
  Sex: Female

DRUGS (21)
  1. VENLAFAXINE HYDROCHLORIDE [Suspect]
     Active Substance: VENLAFAXINE HYDROCHLORIDE
     Indication: Non-small cell lung cancer metastatic
     Route: 065
  2. VENLAFAXINE HYDROCHLORIDE [Suspect]
     Active Substance: VENLAFAXINE HYDROCHLORIDE
     Indication: Non-small cell lung cancer metastatic
     Route: 065
  3. VENLAFAXINE HYDROCHLORIDE [Suspect]
     Active Substance: VENLAFAXINE HYDROCHLORIDE
     Indication: Non-small cell lung cancer metastatic
     Route: 065
  4. VENLAFAXINE HYDROCHLORIDE [Suspect]
     Active Substance: VENLAFAXINE HYDROCHLORIDE
     Indication: Non-small cell lung cancer metastatic
     Route: 065
  5. VENLAFAXINE HYDROCHLORIDE [Suspect]
     Active Substance: VENLAFAXINE HYDROCHLORIDE
     Indication: Non-small cell lung cancer metastatic
     Route: 065
  6. VENLAFAXINE HYDROCHLORIDE [Suspect]
     Active Substance: VENLAFAXINE HYDROCHLORIDE
     Indication: Non-small cell lung cancer metastatic
     Route: 065
  7. PEMETREXED DISODIUM [Suspect]
     Active Substance: PEMETREXED DISODIUM
     Indication: Non-small cell lung cancer metastatic
     Route: 065
  8. PEMETREXED DISODIUM [Suspect]
     Active Substance: PEMETREXED DISODIUM
     Indication: Non-small cell lung cancer metastatic
     Route: 065
  9. PEMETREXED DISODIUM [Suspect]
     Active Substance: PEMETREXED DISODIUM
     Indication: Non-small cell lung cancer metastatic
     Route: 065
  10. PEMETREXED DISODIUM [Suspect]
     Active Substance: PEMETREXED DISODIUM
     Indication: Non-small cell lung cancer metastatic
     Route: 065
  11. PEMETREXED DISODIUM [Suspect]
     Active Substance: PEMETREXED DISODIUM
     Indication: Non-small cell lung cancer metastatic
     Route: 065
  12. PEMETREXED DISODIUM [Suspect]
     Active Substance: PEMETREXED DISODIUM
     Indication: Non-small cell lung cancer metastatic
     Route: 065
  13. PEMETREXED DISODIUM [Suspect]
     Active Substance: PEMETREXED DISODIUM
     Indication: Non-small cell lung cancer metastatic
     Route: 065
  14. ESOMEPRAZOLE MAGNESIUM [Suspect]
     Active Substance: ESOMEPRAZOLE MAGNESIUM
     Indication: Non-small cell lung cancer metastatic
     Route: 065
  15. ESOMEPRAZOLE MAGNESIUM [Suspect]
     Active Substance: ESOMEPRAZOLE MAGNESIUM
     Indication: Non-small cell lung cancer metastatic
     Route: 065
  16. NEXIUM 24HR [Suspect]
     Active Substance: ESOMEPRAZOLE MAGNESIUM
     Indication: Non-small cell lung cancer metastatic
     Route: 048
  17. NEXIUM 24HR [Suspect]
     Active Substance: ESOMEPRAZOLE MAGNESIUM
     Indication: Non-small cell lung cancer metastatic
     Route: 048
  18. CISPLATIN [Concomitant]
     Active Substance: CISPLATIN
     Indication: Non-small cell lung cancer metastatic
     Route: 065
  19. CISPLATIN [Concomitant]
     Active Substance: CISPLATIN
     Indication: Non-small cell lung cancer metastatic
     Route: 065
  20. CISPLATIN [Concomitant]
     Active Substance: CISPLATIN
     Indication: Non-small cell lung cancer metastatic
     Route: 065
  21. CISPLATIN [Concomitant]
     Active Substance: CISPLATIN
     Indication: Non-small cell lung cancer metastatic
     Route: 065

REACTIONS (3)
  - Tubulointerstitial nephritis [Recovering/Resolving]
  - Renal impairment [Recovering/Resolving]
  - Blood creatinine increased [Recovering/Resolving]
